FAERS Safety Report 4418605-0 (Version None)
Quarter: 2004Q3

REPORT INFORMATION
  Report Type: 
  Country: None (occurrence: None)
  Receive Date: 20040809
  Receipt Date: 20030731
  Transmission Date: 20050211
  Serious: No
  Sender: FDA-Public Use
  Company Number: US-GLAXOSMITHKLINE-A0419220A

PATIENT
  Age: 22 Year
  Sex: Female
  Weight: 77.3 kg

DRUGS (1)
  1. PAXIL [Suspect]
     Indication: BIPOLAR II DISORDER
     Dosage: 30MG PER DAY
     Route: 048
     Dates: start: 19980101

REACTIONS (6)
  - ANORGASMIA [None]
  - EMOTIONAL DISORDER [None]
  - IRRITABILITY [None]
  - LACRIMATION INCREASED [None]
  - SEDATION [None]
  - WEIGHT INCREASED [None]
